FAERS Safety Report 24457050 (Version 3)
Quarter: 2024Q4

REPORT INFORMATION
  Report Type: Spontaneous
  Country: US (occurrence: US)
  Receive Date: 20241018
  Receipt Date: 20241211
  Transmission Date: 20250115
  Serious: Yes (Hospitalization)
  Sender: SERVIER
  Company Number: US-SERVIER-S24012700

PATIENT

DRUGS (3)
  1. ASPARLAS [Suspect]
     Active Substance: CALASPARGASE PEGOL-MKNL
     Indication: B-cell type acute leukaemia
     Dosage: DOSES 1, 2, 3 AND 4
     Route: 042
  2. ASPARLAS [Suspect]
     Active Substance: CALASPARGASE PEGOL-MKNL
     Dosage: 3622.5 IU, 5 TH DOSE
     Route: 042
     Dates: start: 20240828, end: 20240828
  3. VINCRISTINE [Concomitant]
     Active Substance: VINCRISTINE
     Indication: B-cell type acute leukaemia
     Dosage: 2 MG
     Route: 042
     Dates: start: 20240828, end: 20240828

REACTIONS (2)
  - Febrile neutropenia [Recovered/Resolved]
  - Pancreatitis acute [Recovered/Resolved]

NARRATIVE: CASE EVENT DATE: 20240905
